FAERS Safety Report 20511815 (Version 1)
Quarter: 2022Q1

REPORT INFORMATION
  Report Type: Spontaneous
  Country: US (occurrence: US)
  Receive Date: 20220224
  Receipt Date: 20220224
  Transmission Date: 20220423
  Serious: Yes (Death, Hospitalization, Other)
  Sender: FDA-Public Use
  Company Number: US-LUPIN PHARMACEUTICALS INC.-2022-02338

PATIENT
  Age: 57 Year
  Sex: Male

DRUGS (17)
  1. FLUCYTOSINE [Suspect]
     Active Substance: FLUCYTOSINE
     Indication: Cryptococcosis
     Dosage: 2000 MG, QOD (VIA GASTROSTOMY TUBE EVERY OTHER DAY)
     Route: 048
  2. METHYLPREDNISOLONE [Suspect]
     Active Substance: METHYLPREDNISOLONE
     Indication: COVID-19 pneumonia
     Dosage: 40 MG, TID
     Route: 042
     Dates: start: 2021, end: 2021
  3. HYDROCORTISONE [Suspect]
     Active Substance: HYDROCORTISONE
     Indication: COVID-19 pneumonia
     Dosage: 100 MG, TID
     Route: 042
     Dates: start: 2021
  4. DEXAMETHASONE [Suspect]
     Active Substance: DEXAMETHASONE
     Indication: COVID-19 pneumonia
     Dosage: 6 MILLIGRAM, QD
     Route: 048
     Dates: start: 2021, end: 2021
  5. AMPHOTERICIN B [Suspect]
     Active Substance: AMPHOTERICIN B
     Indication: Cryptococcosis
     Dosage: 400 MG, QD
     Route: 042
     Dates: start: 2021, end: 2021
  6. REMDESIVIR [Suspect]
     Active Substance: REMDESIVIR
     Indication: COVID-19 pneumonia
     Dosage: UNK
     Route: 042
     Dates: start: 2021, end: 2021
  7. VANCOMYCIN [Concomitant]
     Active Substance: VANCOMYCIN
     Indication: Evidence based treatment
     Dosage: UNK
     Route: 065
     Dates: start: 2021, end: 2021
  8. VANCOMYCIN [Concomitant]
     Active Substance: VANCOMYCIN
     Indication: Pneumonia
  9. MEROPENEM [Concomitant]
     Active Substance: MEROPENEM
     Indication: Evidence based treatment
     Dosage: UNK
     Route: 065
     Dates: start: 2021, end: 2021
  10. MEROPENEM [Concomitant]
     Active Substance: MEROPENEM
     Indication: Pneumonia
  11. NYSTATIN [Concomitant]
     Active Substance: NYSTATIN
     Indication: Enterocolitis fungal
     Dosage: UNK (1 MILLION UNITS 6 TIMES A DAY VIA GASTROSTOMY TUBE)
     Route: 065
     Dates: start: 2021
  12. MIDODRINE [Concomitant]
     Active Substance: MIDODRINE
     Indication: Hypotension
     Dosage: 10 MG, TID
     Route: 065
     Dates: start: 2021
  13. MICAFUNGIN [Concomitant]
     Active Substance: MICAFUNGIN
     Indication: Candida infection
     Dosage: 100 MG, QD
     Route: 065
     Dates: start: 2021
  14. AZITHROMYCIN [Concomitant]
     Active Substance: AZITHROMYCIN
     Indication: Staphylococcal infection
     Dosage: 500 MILLIGRAM, QD
     Route: 042
     Dates: start: 2021
  15. AZITHROMYCIN [Concomitant]
     Active Substance: AZITHROMYCIN
     Indication: Pneumonia
  16. CEFTRIAXONE [Concomitant]
     Active Substance: CEFTRIAXONE
     Indication: Staphylococcal infection
     Dosage: 1 GRAM, QD
     Route: 042
     Dates: start: 2021
  17. CEFTRIAXONE [Concomitant]
     Active Substance: CEFTRIAXONE
     Indication: Pneumonia

REACTIONS (5)
  - Disseminated cryptococcosis [Fatal]
  - Cryptococcosis [Fatal]
  - Cryptococcal meningoencephalitis [Fatal]
  - Drug ineffective [Fatal]
  - Off label use [Unknown]

NARRATIVE: CASE EVENT DATE: 20210101
